FAERS Safety Report 25990898 (Version 1)
Quarter: 2025Q4

REPORT INFORMATION
  Report Type: Spontaneous
  Country: JP (occurrence: JP)
  Receive Date: 20251103
  Receipt Date: 20251103
  Transmission Date: 20260118
  Serious: Yes (Death, Other)
  Sender: MERCK SHARP & DOHME LLC
  Company Number: JP-009507513-2345064

PATIENT
  Age: 71 Year
  Sex: Female

DRUGS (2)
  1. PEMBROLIZUMAB [Suspect]
     Active Substance: PEMBROLIZUMAB
     Indication: Metastatic uterine cancer
  2. LENVATINIB [Suspect]
     Active Substance: LENVATINIB
     Indication: Metastatic uterine cancer
     Dosage: DOSE ALSO REPORTED AS 8 MG (CONFLICTING INFORMATION)
     Route: 048

REACTIONS (2)
  - Death [Fatal]
  - Malignant neoplasm progression [Unknown]
